FAERS Safety Report 5949911-6 (Version None)
Quarter: 2008Q4

REPORT INFORMATION
  Report Type: 
  Country: None (occurrence: None)
  Receive Date: 20081112
  Receipt Date: 20081030
  Transmission Date: 20090506
  Serious: Yes (Other)
  Sender: FDA-Public Use
  Company Number: FR-ELI_LILLY_AND_COMPANY-FR200810007481

PATIENT
  Age: 39 Year
  Sex: Female

DRUGS (6)
  1. CYMBALTA [Suspect]
     Indication: DEPRESSION
     Dosage: 90 MG, DAILY (1/D)
     Route: 048
  2. TRANXENE [Concomitant]
     Dosage: UNK, UNKNOWN
     Route: 048
  3. PENICILLAMINE [Concomitant]
     Dosage: UNK, UNKNOWN
     Route: 048
  4. ACETAMINOPHEN W/ CODEINE [Concomitant]
     Indication: FIBROMYALGIA
     Dosage: UNK, UNKNOWN
     Route: 048
  5. TETRAZEPAM [Concomitant]
     Dosage: UNK, UNKNOWN
     Route: 048
  6. MORPHINE [Concomitant]
     Dosage: UNK, UNKNOWN
     Route: 048

REACTIONS (6)
  - BACK PAIN [None]
  - DEPRESSION [None]
  - DIZZINESS [None]
  - FALL [None]
  - ORTHOSTATIC HYPOTENSION [None]
  - SUICIDAL IDEATION [None]
